FAERS Safety Report 10622445 (Version 1)
Quarter: 2014Q4

REPORT INFORMATION
  Report Type: Spontaneous
  Country: IN (occurrence: None)
  Receive Date: 20141201
  Receipt Date: 20141201
  Transmission Date: 20150529
  Serious: Yes (Other)
  Sender: FDA-Public Use
  Company Number: None

PATIENT
  Age: 59 Year
  Sex: Female
  Weight: 60 kg

DRUGS (3)
  1. CILNIDIPINE [Suspect]
     Active Substance: CILNIDIPINE
     Indication: HYPERTENSION
     Dosage: 1 PILLS ORAL
     Route: 048
  2. ASTIN (ATORVASTATIN) [Concomitant]
  3. HYRONORM 50MCG (LEVOTHYROXINE) [Concomitant]

REACTIONS (2)
  - Oedema [None]
  - Peripheral swelling [None]

NARRATIVE: CASE EVENT DATE: 20141126
